FAERS Safety Report 7581866-3 (Version None)
Quarter: 2011Q2

REPORT INFORMATION
  Report Type: 
  Country: None (occurrence: None)
  Receive Date: 20110629
  Receipt Date: 20101208
  Transmission Date: 20111010
  Serious: Yes (Other)
  Sender: FDA-Public Use
  Company Number: PHHY2010DE92235

PATIENT
  Age: 62 Year
  Sex: Female

DRUGS (10)
  1. ZOLEDRONIC ACID [Suspect]
     Dosage: UNK UKN, UNK
     Route: 042
  2. CYCLOPHOSPHAMIDE [Concomitant]
  3. CAPECITABINE [Concomitant]
  4. ASPIRIN [Concomitant]
  5. EPIRUBICIN [Concomitant]
  6. LEUCOVORIN CALCIUM [Concomitant]
  7. FLUOROURACIL [Concomitant]
  8. VINORELBINE [Concomitant]
  9. MELPHALAN HYDROCHLORIDE [Concomitant]
  10. PREDNISONE [Concomitant]

REACTIONS (2)
  - OSTEONECROSIS OF JAW [None]
  - DECUBITUS ULCER [None]
